FAERS Safety Report 6235701-6 (Version None)
Quarter: 2009Q2

REPORT INFORMATION
  Report Type: 
  Country: None (occurrence: None)
  Receive Date: 20090616
  Receipt Date: 20090603
  Transmission Date: 20091009
  Serious: Yes (Other)
  Sender: FDA-Public Use
  Company Number: 1-18690038

PATIENT
  Age: 6 Year
  Sex: Male
  Weight: 19.0511 kg

DRUGS (6)
  1. CETIRIZINE HCL [Suspect]
     Indication: HYPERSENSITIVITY
     Dosage: 1 TSP, ONCE, ORAL
     Route: 048
     Dates: start: 20090602
  2. NOVOLOG [Concomitant]
  3. LANTUS [Concomitant]
  4. FLOVENT HFA [Concomitant]
  5. VENTOLIN HFA [Concomitant]
  6. NASONEX [Concomitant]

REACTIONS (1)
  - BLOOD GLUCOSE INCREASED [None]
